FAERS Safety Report 8535550 (Version 2)
Quarter: 2012Q4

REPORT INFORMATION
  Report Type: Report from Study
  Country: JP (occurrence: JP)
  Receive Date: 20120430
  Receipt Date: 20121212
  Transmission Date: 20130627
  Serious: Yes (Hospitalization)
  Sender: FDA-Public Use
  Company Number: JP-PFIZER INC-2011144673

PATIENT
  Age: 69 Year
  Sex: Male
  Weight: 61.5 kg

DRUGS (36)
  1. AXITINIB [Suspect]
     Indication: METASTATIC RENAL CELL CARCINOMA
     Dosage: 5 mg, 2x/day
     Route: 048
     Dates: start: 20101116, end: 20110518
  2. AXITINIB [Suspect]
     Dosage: 5 mg, 2x/day
     Route: 048
     Dates: start: 20110604, end: 20110613
  3. AXITINIB [Suspect]
     Dosage: 5 mg, 2x/day
     Route: 048
     Dates: start: 20110705, end: 20110715
  4. PLACEBO [Suspect]
     Indication: METASTATIC RENAL CELL CARCINOMA
     Dosage: UNK mg, 2x/day
     Dates: start: 20101214, end: 20110518
  5. PLACEBO [Suspect]
     Dosage: UNK mg, 2x/day
     Dates: start: 20110604, end: 20110613
  6. PLACEBO [Suspect]
     Dosage: UNK mg, 2x/day
     Route: 048
     Dates: start: 20110705, end: 20110714
  7. PURSENNID [Concomitant]
     Indication: CONSTIPATION
     Dosage: 24 mg, as needed
     Route: 048
     Dates: start: 20101103
  8. MAGNESIUM OXIDE [Concomitant]
     Indication: CONSTIPATION
     Dosage: 0.5 g, 3x/day
     Route: 048
     Dates: start: 20101103
  9. MOBIC [Concomitant]
     Indication: INTERVERTEBRAL DISC HERNIATION
     Dosage: 10 mg, 1x/day
     Route: 048
     Dates: start: 20101104, end: 20110525
  10. MOBIC [Concomitant]
     Dosage: 20 mg, 1x/day
     Route: 048
     Dates: start: 20110526, end: 20110602
  11. MOBIC [Concomitant]
     Dosage: 15 mg, 1x/day
     Route: 048
     Dates: start: 20110603, end: 20110612
  12. TELEMINSOFT [Concomitant]
     Indication: CONSTIPATION
     Dosage: 4 mg, as needed
     Route: 054
     Dates: start: 20101109
  13. TAKEPRON [Concomitant]
     Indication: CHRONIC GASTRITIS
     Dosage: 15 mg, 1x/day
     Route: 048
     Dates: start: 20101112
  14. HIRUDOID [Concomitant]
     Indication: HAND AND FOOT SKIN REACTION
     Dosage: UNK
     Route: 003
     Dates: start: 20101118
  15. HACHIAZULE [Concomitant]
     Indication: STOMATITIS
     Dosage: 2 g, 2x/day
     Dates: start: 20101123
  16. PRIMPERAN [Concomitant]
     Indication: QUEASY
     Dosage: 5 mg, 3x/day
     Route: 048
     Dates: start: 20110316
  17. PRIMPERAN [Concomitant]
     Indication: VOMITING
     Dosage: 10 mg, 1x/day
     Route: 042
     Dates: start: 20110525, end: 20110525
  18. LAC B [Concomitant]
     Indication: DIARRHOEA
     Dosage: 2 g, 3x/day
     Route: 048
     Dates: start: 20110326
  19. GASMOTIN [Concomitant]
     Indication: ANOREXIA
     Dosage: 5 mg, 3x/day
     Route: 048
     Dates: start: 20110401
  20. LOPEMIN [Concomitant]
     Indication: DIARRHOEA
     Dosage: 1 mg, as needed
     Route: 048
  21. OXINORM [Concomitant]
     Indication: CANCER PAIN
     Dosage: 10 mg, as needed
     Route: 048
     Dates: start: 20110506
  22. OXYCONTIN [Concomitant]
     Indication: CANCER PAIN
     Dosage: 40 mg, 2x/day
     Route: 048
     Dates: start: 20110507
  23. AMLODIPINE BESILATE [Concomitant]
     Indication: HYPERTENSION
     Dosage: 5 mg, 1x/day
     Route: 048
     Dates: start: 20110509, end: 20110518
  24. AMLODIPINE BESILATE [Concomitant]
     Dosage: 5 mg, 1x/day
     Route: 048
     Dates: start: 20110604, end: 20110604
  25. AMLODIPINE BESILATE [Concomitant]
     Dosage: 5 mg, 1x/day
     Route: 048
     Dates: start: 20110607, end: 20110607
  26. VEEN-F [Concomitant]
     Indication: QUEASY
     Dosage: 500 ml, 1x/day
     Route: 042
     Dates: start: 20110523, end: 20110523
  27. VEEN-F [Concomitant]
     Indication: VOMITING
  28. VEEN D [Concomitant]
     Indication: QUEASY
     Dosage: 500 ml, 1x/day
     Route: 042
     Dates: start: 20110523, end: 20110524
  29. VEEN D [Concomitant]
     Indication: VOMITING
     Dosage: 500 ml, 2x/day
     Route: 042
     Dates: start: 20110531, end: 20110602
  30. SOLDEM 3A [Concomitant]
     Indication: QUEASY
     Dosage: 500 ml, 2x/day
     Route: 042
     Dates: start: 20110524, end: 20110525
  31. SOLDEM 3A [Concomitant]
     Indication: VOMITING
  32. ZOMETA [Concomitant]
     Dosage: 4 mg, 1x/day
     Route: 042
     Dates: start: 20110606, end: 20110606
  33. CALONAL [Concomitant]
     Indication: PYREXIA
     Dosage: 500 mg, 1x/day
     Route: 048
     Dates: start: 20110608, end: 20110608
  34. CALONAL [Concomitant]
     Dosage: 1000 mg, UNK
     Route: 048
     Dates: start: 20110609, end: 20110611
  35. CALONAL [Concomitant]
     Dosage: 2000 mg, UNK
     Route: 048
     Dates: start: 20110612
  36. CRAVIT [Concomitant]
     Indication: PYREXIA
     Dosage: 500 mg, 1x/day
     Route: 048
     Dates: start: 20110611, end: 20110613

REACTIONS (1)
  - Pyrexia [Recovered/Resolved]
